FAERS Safety Report 25149997 (Version 1)
Quarter: 2025Q2

REPORT INFORMATION
  Report Type: Spontaneous
  Country: DE (occurrence: DE)
  Receive Date: 20250402
  Receipt Date: 20250402
  Transmission Date: 20250716
  Serious: Yes (Congenital Anomaly)
  Sender: PFIZER
  Company Number: DE-EMB-M202310211-1

PATIENT
  Sex: Female
  Weight: 2.7 kg

DRUGS (14)
  1. SULFASALAZINE [Suspect]
     Active Substance: SULFASALAZINE
     Indication: Colitis ulcerative
     Dosage: FREQ:.5 D;(500-0-500)-?, STOPPED IN THE COURSE OF PREGNANCY (UNKNOWN WHEN, HOWEVER AFTER GW 13)
     Route: 064
     Dates: start: 202309, end: 202312
  2. DESLORATADINE [Suspect]
     Active Substance: DESLORATADINE
     Indication: Cholestatic pruritus
     Route: 064
     Dates: start: 202309, end: 202406
  3. AZATHIOPRINE [Suspect]
     Active Substance: AZATHIOPRINE
     Indication: Autoimmune hepatitis
     Dosage: FREQ:.5 D;(50-0-50)
     Route: 064
     Dates: start: 202309, end: 202406
  4. AZATHIOPRINE [Suspect]
     Active Substance: AZATHIOPRINE
     Indication: Colitis ulcerative
  5. ESOMEPRAZOLE [Suspect]
     Active Substance: ESOMEPRAZOLE
     Indication: Gastritis prophylaxis
     Dosage: FREQ:.5 D;20-0-20 MG/D
     Route: 064
     Dates: start: 202309, end: 202406
  6. ESOMEPRAZOLE [Suspect]
     Active Substance: ESOMEPRAZOLE
     Indication: Gastrooesophageal reflux disease
  7. ILARIS [Suspect]
     Active Substance: CANAKINUMAB
     Indication: Familial mediterranean fever
     Route: 064
     Dates: start: 202309, end: 202406
  8. URSODIOL [Suspect]
     Active Substance: URSODIOL
     Indication: Cholangitis sclerosing
     Dosage: FREQ:.5 D;(500-0-500)
     Route: 064
     Dates: start: 202309, end: 202406
  9. ENOXAPARIN SODIUM [Concomitant]
     Active Substance: ENOXAPARIN SODIUM
     Indication: Thrombosis prophylaxis
     Dosage: 40 MG, 1X/DAY
     Route: 064
     Dates: start: 202309, end: 202404
  10. ENOXAPARIN SODIUM [Concomitant]
     Active Substance: ENOXAPARIN SODIUM
     Dosage: 60 MG, 1X/DAY
     Route: 064
     Dates: start: 202404, end: 202406
  11. BOOSTRIX [Concomitant]
     Active Substance: TETANUS TOXOID, REDUCED DIPHTHERIA TOXOID AND ACELLULAR PERTUSSIS VACCINE, ADSORBED ANTIGENS
     Indication: Immunisation
     Route: 064
  12. FOLIC ACID [Concomitant]
     Active Substance: FOLIC ACID
     Indication: Prophylaxis of neural tube defect
     Dosage: 5 MG, 1X/DAY
     Route: 064
     Dates: start: 202309, end: 202406
  13. MISOPROSTOL [Concomitant]
     Active Substance: MISOPROSTOL
     Indication: Labour induction
     Route: 064
     Dates: start: 202405, end: 202405
  14. INFLUENZA VIRUS VACCINE [Concomitant]
     Active Substance: INFLUENZA VIRUS VACCINE
     Indication: Immunisation
     Route: 064

REACTIONS (2)
  - Exposure during pregnancy [Not Recovered/Not Resolved]
  - Atrial septal defect [Not Recovered/Not Resolved]

NARRATIVE: CASE EVENT DATE: 20240701
